FAERS Safety Report 5023173-9 (Version None)
Quarter: 2006Q2

REPORT INFORMATION
  Report Type: 
  Country: None (occurrence: None)
  Receive Date: 20060605
  Receipt Date: 20060524
  Transmission Date: 20061013
  Serious: No
  Sender: FDA-Public Use
  Company Number: 06H-087-0308296-00

PATIENT
  Age: 68 Year
  Sex: Male

DRUGS (2)
  1. PRECEDEX [Suspect]
     Indication: SEDATION
     Dates: start: 20060522
  2. PROPOFOL [Concomitant]

REACTIONS (2)
  - AORTIC VALVE STENOSIS [None]
  - CLONIC CONVULSION [None]
